FAERS Safety Report 9468900 (Version 2)
Quarter: 2013Q3

REPORT INFORMATION
  Report Type: Spontaneous
  Country: US (occurrence: US)
  Receive Date: 20130821
  Receipt Date: 20130821
  Transmission Date: 20140515
  Serious: Yes (Hospitalization)
  Sender: FDA-Public Use
  Company Number: US-LUNDBECK-DKLU1092044

PATIENT
  Age: 15 Year
  Sex: Male

DRUGS (11)
  1. ONFI [Suspect]
     Indication: CONVULSION
     Dates: start: 20120613
  2. ONFI [Suspect]
     Dates: start: 20120829
  3. ONFI [Suspect]
  4. ONFI [Suspect]
  5. ONFI [Suspect]
     Dates: start: 20120904
  6. ONFI [Suspect]
     Dosage: WEANED TO DISCONTINUE (WEANING SCHEDULE NOT REPORTED)
     Dates: end: 201302
  7. PHENYTOIN [Suspect]
     Indication: CONVULSION
  8. PHENYTOIN [Suspect]
  9. LEVETIRACETAM [Concomitant]
     Indication: CONVULSION
  10. BACLOFEN [Concomitant]
     Indication: PRODUCT USED FOR UNKNOWN INDICATION
  11. ATIVAN [Concomitant]
     Indication: PRODUCT USED FOR UNKNOWN INDICATION

REACTIONS (5)
  - Drug level increased [Recovered/Resolved]
  - Drug interaction [Recovered/Resolved]
  - Hypothermia [Unknown]
  - Hypoventilation [Unknown]
  - Convulsion [Unknown]
